FAERS Safety Report 6464550-9 (Version None)
Quarter: 2009Q4

REPORT INFORMATION
  Report Type: 
  Country: None (occurrence: None)
  Receive Date: 20091201
  Receipt Date: 20091125
  Transmission Date: 20100525
  Serious: Yes (Hospitalization, Other)
  Sender: FDA-Public Use
  Company Number: BR-PFIZER INC-2009297406

PATIENT
  Age: 55 Year
  Sex: Female
  Weight: 87 kg

DRUGS (8)
  1. NORVASC [Suspect]
     Indication: HYPERTENSION
     Dosage: 5 MG, 2X/DAY
     Route: 048
     Dates: start: 20040101
  2. OLMETEC [Suspect]
     Indication: HYPERTENSION
     Dosage: 40 MG, 2X/DAY
     Route: 048
     Dates: start: 20081101
  3. DIOVAN [Concomitant]
     Indication: HYPERTENSION
     Dosage: 160 MG, 2X/DAY
     Dates: end: 20080101
  4. CLOPIDOGREL [Concomitant]
     Dosage: 1 DF, 2X/DAY
  5. ATENSINA [Concomitant]
     Dosage: 0.100 MG, 2X/DAY
  6. AMARYL [Concomitant]
     Indication: HYPERGLYCAEMIA
     Dosage: 1 TABLET, EVERY 3 DAYS
     Route: 048
  7. SELOZOK [Concomitant]
     Dosage: 200 MG, 2X/DAY
  8. PANTOZOL [Concomitant]
     Dosage: 20 MG, 1X/DAY

REACTIONS (4)
  - CORONARY ARTERY THROMBOSIS [None]
  - EMBOLISM [None]
  - HYPERTENSIVE CRISIS [None]
  - LOSS OF CONSCIOUSNESS [None]
